FAERS Safety Report 10563806 (Version 1)
Quarter: 2014Q4

REPORT INFORMATION
  Report Type: Spontaneous
  Country: US (occurrence: US)
  Receive Date: 20141104
  Receipt Date: 20141104
  Transmission Date: 20150529
  Serious: Yes (Life-Threatening, Hospitalization, Other)
  Sender: FDA-Public Use
  Company Number: US-BRISTOL-MYERS SQUIBB COMPANY-21540596

PATIENT
  Age: 70 Year
  Sex: Male
  Weight: 78.6 kg

DRUGS (2)
  1. IPILIMUMAB [Suspect]
     Active Substance: IPILIMUMAB
     Indication: MALIGNANT MELANOMA
     Route: 042
     Dates: start: 20140310, end: 20140522
  2. INTERFERON NOS [Suspect]
     Active Substance: INTERFERON
     Indication: MALIGNANT MELANOMA

REACTIONS (4)
  - Urinary retention [Unknown]
  - Nausea [Unknown]
  - Hyponatraemia [Unknown]
  - Metastases to central nervous system [Unknown]

NARRATIVE: CASE EVENT DATE: 201406
